FAERS Safety Report 4433742-2 (Version None)
Quarter: 2004Q3

REPORT INFORMATION
  Report Type: 
  Country: None (occurrence: None)
  Receive Date: 20040824
  Receipt Date: 20040819
  Transmission Date: 20050211
  Serious: Yes (Hospitalization)
  Sender: FDA-Public Use
  Company Number: THQ2004A00763

PATIENT
  Age: 70 Year
  Sex: Male

DRUGS (6)
  1. PROSTAP 3 (LEUPROLIDE ACETATE) (INJECTION) [Suspect]
     Indication: PROSTATE CANCER
     Dosage: 11.25 MG (11.25 MG, 1 IN 3 M)
     Route: 030
     Dates: start: 20040517, end: 20040615
  2. PROSTAP 3 (LEUPROLIDE ACETATE) (INJECTION) [Suspect]
     Indication: PROSTATE CANCER
     Dosage: 11.25 MG (11.25 MG, 1 IN 3 M)
     Route: 030
     Dates: start: 20031006
  3. CANDESARTAN (CANDESARTAN CILEXETIL) [Concomitant]
  4. CELIPROLOL (CELIPROLOL) [Concomitant]
  5. FUROSEMIDE [Concomitant]
  6. ZOPICLONE (ZOPICLONE) [Concomitant]

REACTIONS (5)
  - CELLULITIS [None]
  - CHEST PAIN [None]
  - HOT FLUSH [None]
  - MEDICATION ERROR [None]
  - PAIN IN EXTREMITY [None]
